FAERS Safety Report 11326321 (Version 1)
Quarter: 2015Q3

REPORT INFORMATION
  Report Type: Spontaneous
  Country: GB (occurrence: None)
  Receive Date: 20150729
  Receipt Date: 20150729
  Transmission Date: 20151125
  Serious: Yes (Life-Threatening)
  Sender: FDA-Public Use
  Company Number: GB-H14001-15-01382

PATIENT
  Age: 19 Year
  Sex: Female

DRUGS (4)
  1. MOXIFLOXACIN. [Concomitant]
     Active Substance: MOXIFLOXACIN
  2. FLUCONAZOLE (FLUCONAZOLE) (UNKNOWN) (FLUCONAZOLE) [Suspect]
     Active Substance: FLUCONAZOLE
     Indication: CANDIDA INFECTION
     Dosage: (NOT OTHERWISE SPECIFIED)
     Route: 042
     Dates: start: 20150622, end: 20150630
  3. RIFAMPICIN [Concomitant]
     Active Substance: RIFAMPIN
  4. CLARITHROMYCIN. [Concomitant]
     Active Substance: CLARITHROMYCIN

REACTIONS (3)
  - Generalised tonic-clonic seizure [None]
  - Incorrect drug administration duration [None]
  - Drug prescribing error [None]

NARRATIVE: CASE EVENT DATE: 2015
